FAERS Safety Report 13680908 (Version 1)
Quarter: 2017Q2

REPORT INFORMATION
  Report Type: Spontaneous
  Country: GB (occurrence: GB)
  Receive Date: 20170623
  Receipt Date: 20170623
  Transmission Date: 20170830
  Serious: Yes (Disabling, Other)
  Sender: FDA-Public Use
  Company Number: GB-SUN PHARMACEUTICAL INDUSTRIES LTD-2017RR-143667

PATIENT
  Age: 66 Year
  Sex: Female
  Weight: 69 kg

DRUGS (1)
  1. LORATADINE 10 MG TABLETS [Suspect]
     Active Substance: LORATADINE
     Indication: URTICARIA
     Dosage: 10 MG
     Route: 048
     Dates: start: 20170220, end: 20170225

REACTIONS (7)
  - Supraventricular tachycardia [Recovered/Resolved]
  - Dizziness [Unknown]
  - Inappropriate schedule of drug administration [Unknown]
  - Vertigo [Recovered/Resolved]
  - Balance disorder [Unknown]
  - Head discomfort [Unknown]
  - Visual impairment [Unknown]

NARRATIVE: CASE EVENT DATE: 20170225
